FAERS Safety Report 7815939-4 (Version None)
Quarter: 2011Q4

REPORT INFORMATION
  Report Type: 
  Country: None (occurrence: None)
  Receive Date: 20111014
  Receipt Date: 20110929
  Transmission Date: 20120403
  Serious: Yes (Hospitalization)
  Sender: FDA-Public Use
  Company Number: GB-ROCHE-1002406

PATIENT
  Age: 87 Year
  Sex: Female

DRUGS (4)
  1. BISOPROLOL [Concomitant]
  2. LUCENTIS [Suspect]
     Indication: AGE-RELATED MACULAR DEGENERATION
     Route: 050
     Dates: start: 20100618, end: 20110826
  3. TRAVATAN [Concomitant]
  4. AMITRIPTYLINE HCL [Concomitant]

REACTIONS (1)
  - TRANSIENT ISCHAEMIC ATTACK [None]
